FAERS Safety Report 8517653-9 (Version None)
Quarter: 2012Q3

REPORT INFORMATION
  Report Type: 
  Country: None (occurrence: None)
  Receive Date: 20120718
  Receipt Date: 20120709
  Transmission Date: 20120928
  Serious: No
  Sender: FDA-Public Use
  Company Number: CA-JNJFOC-20120703870

PATIENT
  Sex: Male
  Weight: 102.7 kg

DRUGS (4)
  1. IMURAN [Concomitant]
     Route: 065
  2. ZOPICLONE [Concomitant]
     Route: 065
  3. REMICADE [Suspect]
     Indication: CROHN'S DISEASE
     Dates: start: 20100909
  4. CITALOPRAM HYDROBROMIDE [Concomitant]
     Route: 065

REACTIONS (2)
  - HERPES ZOSTER [None]
  - BRONCHITIS [None]
